FAERS Safety Report 10911624 (Version 2)
Quarter: 2015Q2

REPORT INFORMATION
  Report Type: Report from Study
  Country: US (occurrence: US)
  Receive Date: 20150313
  Receipt Date: 20150402
  Transmission Date: 20150821
  Serious: Yes (Other)
  Sender: FDA-Public Use
  Company Number: US-BIOGENIDEC-2015BI029996

PATIENT
  Age: 51 Year
  Sex: Female

DRUGS (2)
  1. TYSABRI [Suspect]
     Active Substance: NATALIZUMAB
     Indication: RELAPSING-REMITTING MULTIPLE SCLEROSIS
     Route: 042
     Dates: start: 20140327
  2. VITAMIN D [Concomitant]
     Active Substance: CHOLECALCIFEROL
     Dates: start: 2012

REACTIONS (4)
  - Invasive ductal breast carcinoma [Recovered/Resolved]
  - Fibrocystic breast disease [Unknown]
  - Fibroadenoma of breast [Unknown]
  - Breast hyperplasia [Unknown]

NARRATIVE: CASE EVENT DATE: 201501
